FAERS Safety Report 20315216 (Version 2)
Quarter: 2022Q1

REPORT INFORMATION
  Report Type: Spontaneous
  Country: BR (occurrence: BR)
  Receive Date: 20220110
  Receipt Date: 20220119
  Transmission Date: 20220423
  Serious: Yes (Other)
  Sender: FDA-Public Use
  Company Number: BR-SA-SAC20211103000636

PATIENT
  Age: 70 Year
  Sex: Female

DRUGS (9)
  1. LANTUS SOLOSTAR [Suspect]
     Active Substance: INSULIN GLARGINE
     Indication: Diabetes mellitus
     Dosage: UNK
     Dates: start: 2007
  2. LANTUS SOLOSTAR [Suspect]
     Active Substance: INSULIN GLARGINE
     Dosage: UNK UNK, QD
     Route: 042
     Dates: start: 2016
  3. ASPIRIN [Concomitant]
     Active Substance: ASPIRIN
     Indication: Cardiovascular insufficiency
     Dosage: 100 MG, QD (AFTER LUNCH)
     Route: 048
     Dates: start: 2016
  4. RIVOTRIL [Concomitant]
     Active Substance: CLONAZEPAM
     Indication: Insomnia
     Dosage: 0.5 MG, QD
     Route: 048
     Dates: start: 2016
  5. DUTAN [Concomitant]
     Indication: Prostate examination abnormal
     Dosage: UNK UNK, QD
     Route: 048
  6. ENALAPRIL [Concomitant]
     Active Substance: ENALAPRIL
     Dosage: 10 MG, ONE TABLET IN THE EARLY MORNING AND ONE TABLET IN THE EARLY EVENING
     Route: 065
  7. PURAN [Concomitant]
     Active Substance: LEVOTHYROXINE SODIUM
     Indication: Abdominal discomfort
     Dosage: 88 UG, QD
     Route: 065
  8. INSULIN BEEF [Concomitant]
     Active Substance: INSULIN BEEF
     Dosage: 5 IU, TID (5 UNITS, 30 MINUTES BEFORE BREAKFAST, 5 UNITS, 30 MINUTES BEFORE LUNCH, AND 5 UNITS, 30 M
     Route: 065
  9. DUTAM [Concomitant]
     Dosage: 30 UNK, HS (30 (UNSPECIFIED UNIT) AFTER DINNER)
     Route: 065

REACTIONS (6)
  - Renal cancer [Recovering/Resolving]
  - Renal haemorrhage [Recovering/Resolving]
  - Blood glucose increased [Recovered/Resolved]
  - Drug ineffective [Recovered/Resolved]
  - Incorrect route of product administration [Unknown]
  - Product storage error [Unknown]

NARRATIVE: CASE EVENT DATE: 20160101
